FAERS Safety Report 9088741 (Version 3)
Quarter: 2013Q2

REPORT INFORMATION
  Report Type: Report from Study
  Country: IE (occurrence: IE)
  Receive Date: 20130202
  Receipt Date: 20130404
  Transmission Date: 20140414
  Serious: Yes (Other)
  Sender: FDA-Public Use
  Company Number: IE-US-EMD SERONO, INC.-7182706

PATIENT
  Age: 48 Year
  Sex: Female

DRUGS (6)
  1. REBIF [Suspect]
     Indication: RELAPSING-REMITTING MULTIPLE SCLEROSIS
     Route: 058
     Dates: start: 20100901
  2. VENTOLIN [Concomitant]
     Indication: ASTHMA
     Route: 055
  3. VENTOLIN [Concomitant]
     Route: 055
  4. ZISPIN [Concomitant]
     Indication: DEPRESSION
  5. SYMBICORT [Concomitant]
     Indication: ASTHMA
     Route: 055
  6. SYMBICORT [Concomitant]
     Route: 055

REACTIONS (1)
  - Lower respiratory tract infection [Recovered/Resolved]
